FAERS Safety Report 15964835 (Version 2)
Quarter: 2025Q1

REPORT INFORMATION
  Report Type: Spontaneous
  Country: DE (occurrence: DE)
  Receive Date: 20190215
  Receipt Date: 20250219
  Transmission Date: 20250409
  Serious: Yes (Hospitalization)
  Sender: TEVA
  Company Number: DE-EMA-DD-20190129-PRABHAKAR_D-201323

PATIENT
  Age: 29 Year
  Sex: Female
  Weight: 79 kg

DRUGS (2)
  1. COTRIM [Suspect]
     Active Substance: SULFAMETHOXAZOLE\TRIMETHOPRIM
     Indication: Cystitis
     Dosage: 1 TAB, BID: COTRIM FORTE-RATIOPHARM
     Route: 048
     Dates: start: 20010129, end: 20010202
  2. VALPROATE SODIUM [Suspect]
     Active Substance: VALPROATE SODIUM
     Indication: Schizophrenia
     Dosage: DOSAGE TEXT: 300 MG, QID: ORFIRIL ^DESITIN^
     Route: 048
     Dates: start: 199902, end: 20010203

REACTIONS (3)
  - Generalised tonic-clonic seizure [Recovered/Resolved]
  - Leukopenia [Recovered/Resolved]
  - Neutropenia [Recovered/Resolved]

NARRATIVE: CASE EVENT DATE: 20000101
